FAERS Safety Report 11418662 (Version 1)
Quarter: 2015Q3

REPORT INFORMATION
  Report Type: Spontaneous
  Country: FR (occurrence: FR)
  Receive Date: 20150826
  Receipt Date: 20150826
  Transmission Date: 20151125
  Serious: Yes (Hospitalization)
  Sender: FDA-Public Use
  Company Number: FR-009507513-1508FRA008019

PATIENT
  Age: 17 Year
  Sex: Female
  Weight: 67 kg

DRUGS (2)
  1. ATARAX [Concomitant]
     Active Substance: HYDROXYZINE\HYDROXYZINE HYDROCHLORIDE
  2. NEXPLANON [Suspect]
     Active Substance: ETONOGESTREL
     Indication: CONTRACEPTION
     Dosage: AN NEXPIANON INSERTION
     Route: 059
     Dates: start: 20140507

REACTIONS (10)
  - Iron deficiency [Unknown]
  - Fatigue [Unknown]
  - Subcutaneous abscess [Unknown]
  - Menorrhagia [Recovered/Resolved]
  - Amenorrhoea [Unknown]
  - Vaginal abscess [Unknown]
  - Weight decreased [Unknown]
  - Amenorrhoea [Recovered/Resolved]
  - Gastric disorder [Unknown]
  - Implant site pain [Unknown]

NARRATIVE: CASE EVENT DATE: 20140507
